FAERS Safety Report 7473329-0 (Version None)
Quarter: 2011Q2

REPORT INFORMATION
  Report Type: 
  Country: None (occurrence: None)
  Receive Date: 20110511
  Receipt Date: 20110504
  Transmission Date: 20111010
  Serious: Yes (Death, Hospitalization, Other)
  Sender: FDA-Public Use
  Company Number: TW-ABBOTT-11P-153-0719157-00

PATIENT
  Sex: Male
  Weight: 79.5 kg

DRUGS (9)
  1. MTX [Concomitant]
     Indication: RHEUMATOID ARTHRITIS
     Route: 048
     Dates: start: 20080607, end: 20110308
  2. FOLIC ACID [Concomitant]
     Indication: PRODUCT USED FOR UNKNOWN INDICATION
     Route: 048
  3. ETORICOXIB [Concomitant]
     Indication: PRODUCT USED FOR UNKNOWN INDICATION
     Dosage: 1 IN 1 DAY, FC TAB
     Route: 048
  4. SULFASALAZINE [Concomitant]
     Indication: PRODUCT USED FOR UNKNOWN INDICATION
     Route: 048
  5. HYDROXYCHLOROQUINE SULFATE [Concomitant]
     Indication: PRODUCT USED FOR UNKNOWN INDICATION
     Route: 048
  6. PREDNISOLONE [Concomitant]
     Indication: PRODUCT USED FOR UNKNOWN INDICATION
     Route: 048
  7. WESU TAB DICYCLOMINE 5 MG+AI(OH)3 GEL 400 MG + MGO 200 MG/TAB [Concomitant]
     Indication: PRODUCT USED FOR UNKNOWN INDICATION
     Route: 048
  8. HUMIRA [Suspect]
     Indication: RHEUMATOID ARTHRITIS
     Route: 058
     Dates: start: 20100122, end: 20110308
  9. MTX [Concomitant]
     Route: 048

REACTIONS (4)
  - HEPATITIS FULMINANT [None]
  - ACUTE HEPATIC FAILURE [None]
  - SEPSIS [None]
  - HEPATITIS [None]
